FAERS Safety Report 5145719-2 (Version None)
Quarter: 2006Q4

REPORT INFORMATION
  Report Type: 
  Country: None (occurrence: None)
  Receive Date: 20060915
  Receipt Date: 20051219
  Transmission Date: 20070319
  Serious: Yes (Other)
  Sender: FDA-Public Use
  Company Number: S05-USA-05280-01

PATIENT
  Age: 60 Year
  Sex: Male

DRUGS (2)
  1. CELEXA [Suspect]
     Indication: ANXIETY
     Dosage: 40 MG QD PO
     Route: 048
     Dates: start: 20050901
  2. METHADONE HCL [Concomitant]

REACTIONS (9)
  - ANGER [None]
  - ANXIETY [None]
  - BALANCE DISORDER [None]
  - DYSKINESIA [None]
  - FALL [None]
  - HALLUCINATIONS, MIXED [None]
  - PRODUCTIVE COUGH [None]
  - STARING [None]
  - VISION BLURRED [None]
